FAERS Safety Report 11751806 (Version 1)
Quarter: 2015Q4

REPORT INFORMATION
  Report Type: Spontaneous
  Country: US (occurrence: US)
  Receive Date: 20151118
  Receipt Date: 20151118
  Transmission Date: 20160304
  Serious: No
  Sender: FDA-Public Use
  Company Number: US-009507513-1511USA002060

PATIENT
  Age: 23 Year
  Sex: Female
  Weight: 68.8 kg

DRUGS (1)
  1. NEXPLANON [Suspect]
     Active Substance: ETONOGESTREL
     Indication: CONTRACEPTION
     Dosage: 1 RING FOR 3 YEARS
     Route: 059
     Dates: start: 2014, end: 20151102

REACTIONS (4)
  - Vaginal haemorrhage [Unknown]
  - Product quality issue [Unknown]
  - Device breakage [Unknown]
  - Keloid scar [Unknown]

NARRATIVE: CASE EVENT DATE: 2014
